FAERS Safety Report 19683482 (Version 3)
Quarter: 2022Q2

REPORT INFORMATION
  Report Type: Report from Study
  Country: CO (occurrence: CO)
  Receive Date: 20210811
  Receipt Date: 20220528
  Transmission Date: 20220720
  Serious: Yes (Other)
  Sender: FDA-Public Use
  Company Number: CO-ABBVIE-21K-036-4032337-00

PATIENT
  Sex: Female
  Weight: 60 kg

DRUGS (3)
  1. HUMIRA [Suspect]
     Active Substance: ADALIMUMAB
     Indication: Ankylosing spondylitis
     Route: 058
     Dates: start: 20121022
  2. HUMIRA [Suspect]
     Active Substance: ADALIMUMAB
     Indication: Ankylosing spondylitis
     Route: 058
     Dates: end: 20211021
  3. HUMIRA [Suspect]
     Active Substance: ADALIMUMAB
     Route: 058

REACTIONS (18)
  - Glaucoma [Recovering/Resolving]
  - Cataract operation complication [Recovering/Resolving]
  - Eye disorder [Recovering/Resolving]
  - Visual impairment [Recovering/Resolving]
  - Arthritis [Recovering/Resolving]
  - Staphylococcal infection [Not Recovered/Not Resolved]
  - Ocular discomfort [Recovering/Resolving]
  - Eye discharge [Unknown]
  - Eye inflammation [Not Recovered/Not Resolved]
  - Eye pruritus [Not Recovered/Not Resolved]
  - Eye colour change [Not Recovered/Not Resolved]
  - Osteitis [Recovering/Resolving]
  - Post procedural inflammation [Unknown]
  - Inflammation [Recovering/Resolving]
  - Pruritus [Recovering/Resolving]
  - Drug hypersensitivity [Recovering/Resolving]
  - Hypersensitivity [Not Recovered/Not Resolved]
  - Erythema [Recovering/Resolving]

NARRATIVE: CASE EVENT DATE: 20190101
